FAERS Safety Report 24916097 (Version 1)
Quarter: 2025Q1

REPORT INFORMATION
  Report Type: Spontaneous
  Country: US (occurrence: US)
  Receive Date: 20250203
  Receipt Date: 20250203
  Transmission Date: 20250409
  Serious: Yes (Other)
  Sender: ALEXION PHARMACEUTICALS
  Company Number: US-ASTRAZENECA-202501USA026753US

PATIENT
  Age: 65 Year
  Weight: 87.075 kg

DRUGS (14)
  1. FULVESTRANT [Suspect]
     Active Substance: FULVESTRANT
     Indication: Breast cancer female
  2. FULVESTRANT [Suspect]
     Active Substance: FULVESTRANT
  3. PALBOCICLIB [Suspect]
     Active Substance: PALBOCICLIB
     Indication: Breast cancer female
  4. PALBOCICLIB [Suspect]
     Active Substance: PALBOCICLIB
  5. TYKERB [Suspect]
     Active Substance: LAPATINIB DITOSYLATE
  6. MAGNESIUM CITRATE [Suspect]
     Active Substance: MAGNESIUM CITRATE
  7. MECLIZINE [Concomitant]
     Active Substance: MECLIZINE HYDROCHLORIDE
  8. DIAZEPAM [Concomitant]
     Active Substance: DIAZEPAM
  9. METHOCARBAMOL [Concomitant]
     Active Substance: METHOCARBAMOL
  10. CITALOPRAM [Concomitant]
     Active Substance: CITALOPRAM
  11. ERGOCALCIFEROL [Concomitant]
     Active Substance: ERGOCALCIFEROL
  12. MAGNESIUM [Concomitant]
     Active Substance: MAGNESIUM
  13. MINERALS\VITAMINS [Concomitant]
     Active Substance: MINERALS\VITAMINS
  14. TIMOLOL [Concomitant]
     Active Substance: TIMOLOL

REACTIONS (13)
  - Meniere^s disease [Unknown]
  - Weight decreased [Unknown]
  - Muscle disorder [Unknown]
  - Tendon disorder [Not Recovered/Not Resolved]
  - Constipation [Not Recovered/Not Resolved]
  - Trigger finger [Not Recovered/Not Resolved]
  - Back pain [Not Recovered/Not Resolved]
  - Wheelchair user [Unknown]
  - Gait disturbance [Not Recovered/Not Resolved]
  - Pain in extremity [Not Recovered/Not Resolved]
  - Malaise [Unknown]
  - Tumour marker increased [Unknown]
  - Diarrhoea [Unknown]
